FAERS Safety Report 19847420 (Version 1)
Quarter: 2021Q3

REPORT INFORMATION
  Report Type: Spontaneous
  Country: DE (occurrence: DE)
  Receive Date: 20210917
  Receipt Date: 20210917
  Transmission Date: 20211014
  Serious: Yes (Hospitalization)
  Sender: FDA-Public Use
  Company Number: DE-TEVA-2021-DE-1952396

PATIENT
  Age: 71 Year
  Sex: Male
  Weight: 125 kg

DRUGS (4)
  1. ALLOPURINOL. [Suspect]
     Active Substance: ALLOPURINOL
     Dosage: 300 MILLIGRAM DAILY; 1?0?0?0
     Route: 048
  2. RAMILICH COMP. 5MG/25MG [Suspect]
     Active Substance: HYDROCHLOROTHIAZIDE\RAMIPRIL
     Dosage: 1 DOSAGE FORMS DAILY; 25|5 MG, 1?0?0?0
     Route: 048
  3. DICLAC 150MG ID [Concomitant]
     Dosage: 150 MG, IF NECESSARY
     Route: 048
  4. LISINOPRIL. [Suspect]
     Active Substance: LISINOPRIL
     Dosage: 20 MILLIGRAM DAILY; 1?0?0?0
     Route: 048

REACTIONS (3)
  - Diarrhoea [Unknown]
  - Product prescribing error [Unknown]
  - Chromaturia [Unknown]

NARRATIVE: CASE EVENT DATE: 20210131
